FAERS Safety Report 7938121-9 (Version None)
Quarter: 2011Q4

REPORT INFORMATION
  Report Type: 
  Country: None (occurrence: None)
  Receive Date: 20111123
  Receipt Date: 20110819
  Transmission Date: 20120403
  Serious: No
  Sender: FDA-Public Use
  Company Number: US-BRISTOL-MYERS SQUIBB COMPANY-15986391

PATIENT
  Age: 70 Year
  Sex: Male

DRUGS (6)
  1. METFORMIN [Concomitant]
  2. GLIPIZIDE [Concomitant]
     Dosage: GLIPIZIDE XL 2 TABLETS A DAY TWO TIMES A DAY
  3. ACTOS [Concomitant]
     Dosage: ACTOS 45MG 1/2 TAB A DAY
  4. ONGLYZA [Suspect]
     Dosage: ONGLYZA TABS 5 MG ,TOOK HALF A TABLET LAST NIGHT AT 9:30 (PM) AND THIS MORNING AT 11:00 (AM).
  5. SIMVASTATIN [Concomitant]
  6. QUINAPRIL [Concomitant]
     Indication: BLOOD PRESSURE

REACTIONS (5)
  - GASTRIC DISORDER [None]
  - OESOPHAGITIS [None]
  - RETCHING [None]
  - DIZZINESS [None]
  - HYPERHIDROSIS [None]
